FAERS Safety Report 5309468-X (Version None)
Quarter: 2007Q2

REPORT INFORMATION
  Report Type: 
  Country: None (occurrence: None)
  Receive Date: 20070427
  Receipt Date: 20070418
  Transmission Date: 20071010
  Serious: Yes (Other)
  Sender: FDA-Public Use
  Company Number: PHBS2006BR06114

PATIENT
  Sex: Male
  Weight: 72 kg

DRUGS (4)
  1. TRILEPTAL [Suspect]
     Indication: CONVULSION
     Dosage: 300 MG, TID
     Route: 048
     Dates: end: 20060417
  2. TRILEPTAL [Suspect]
     Dosage: 600 MG, TID
     Route: 048
     Dates: end: 20060417
  3. TEGRETOL [Suspect]
     Indication: CONVULSION
     Route: 048
  4. DEPAKENE [Concomitant]
     Indication: CONVULSION
     Route: 048

REACTIONS (15)
  - ALOPECIA [None]
  - CONVULSION [None]
  - DRUG TOXICITY [None]
  - IRRITABILITY [None]
  - LIP DRY [None]
  - LIP HAEMORRHAGE [None]
  - MOOD ALTERED [None]
  - NAIL DISORDER [None]
  - NERVOUSNESS [None]
  - PROSTRATION [None]
  - SKIN DISORDER [None]
  - SPEECH DISORDER [None]
  - SYSTEMIC LUPUS ERYTHEMATOSUS [None]
  - TREMOR [None]
  - WOUND [None]
